FAERS Safety Report 8356221-9 (Version None)
Quarter: 2012Q2

REPORT INFORMATION
  Report Type: 
  Country: None (occurrence: None)
  Receive Date: 20120514
  Receipt Date: 20120502
  Transmission Date: 20120825
  Serious: Yes (Hospitalization)
  Sender: FDA-Public Use
  Company Number: CH-UCBSA-056755

PATIENT
  Age: 49 Year
  Sex: Female
  Weight: 90 kg

DRUGS (7)
  1. VIMPAT [Suspect]
     Indication: EPILEPSY
     Route: 048
     Dates: start: 20110601
  2. LYRICA [Suspect]
     Indication: EPILEPSY
     Route: 048
     Dates: start: 20090101
  3. CLONAZEPAM [Suspect]
     Indication: EPILEPSY
     Route: 048
     Dates: start: 20100101
  4. DURAGESIC-100 [Suspect]
     Route: 062
     Dates: start: 20100101
  5. ATORVASTATIN CALCIUM [Suspect]
     Indication: PROPHYLAXIS
     Route: 048
     Dates: start: 20080101
  6. PLAVIX [Suspect]
     Indication: CEREBRAL INFARCTION
     Route: 048
     Dates: start: 20080101
  7. LYRICA [Suspect]
     Indication: NEURALGIA
     Route: 048
     Dates: start: 20090101

REACTIONS (1)
  - ARTHRALGIA [None]
